FAERS Safety Report 10447700 (Version 2)
Quarter: 2014Q3

REPORT INFORMATION
  Report Type: Spontaneous
  Country: DE (occurrence: DE)
  Receive Date: 20140911
  Receipt Date: 20140911
  Transmission Date: 20150326
  Serious: Yes (Other)
  Sender: FDA-Public Use
  Company Number: DE-PFIZER INC-2014030272

PATIENT
  Age: 87 Year
  Sex: Female

DRUGS (4)
  1. TREVILOR RETARD [Interacting]
     Active Substance: VENLAFAXINE HYDROCHLORIDE
     Dosage: 75 MG, 1X/DAY (1-0-0)
  2. TREVILOR RETARD [Interacting]
     Active Substance: VENLAFAXINE HYDROCHLORIDE
     Dosage: 37.5 MG, UNK
     Route: 048
  3. ASPIRIN. [Interacting]
     Active Substance: ASPIRIN
     Dosage: 100 MG, 1X/DAY (1-0-0)
     Route: 048
  4. TREVILOR RETARD [Suspect]
     Active Substance: VENLAFAXINE HYDROCHLORIDE
     Indication: DEMENTIA ALZHEIMER^S TYPE
     Dosage: 75 MG, UNK
     Dates: start: 20080828

REACTIONS (3)
  - Drug interaction [Unknown]
  - Haemorrhage subcutaneous [Unknown]
  - Off label use [Unknown]
